FAERS Safety Report 7968562-5 (Version None)
Quarter: 2011Q4

REPORT INFORMATION
  Report Type: 
  Country: None (occurrence: None)
  Receive Date: 20111122
  Receipt Date: 20110818
  Transmission Date: 20120403
  Serious: No
  Sender: FDA-Public Use
  Company Number: PHEH2011US01964

PATIENT
  Age: 46 Year
  Sex: Female
  Weight: 111.1313 kg

DRUGS (6)
  1. GILENYA [Suspect]
     Indication: MULTIPLE SCLEROSIS
     Dosage: 0.5 MG, QD, ORAL
     Route: 048
     Dates: start: 20110810
  2. DETROL (TOLTERODINE L-TARTRATE) CAPSULE, 4 MG [Concomitant]
  3. NEXIUM (ESOMEPRAZOLE MAGNESIUM) CAPSULE, 20 MG [Concomitant]
  4. CALCIUM D (ASCORBIC ACID, CALCIUM GLUCONATE, CALCIUM LACTATE, CALCIUM [Concomitant]
  5. LIPITOR [Concomitant]
  6. BACLOFEN (BACLOFEN) TABLET, 20 MG [Concomitant]

REACTIONS (5)
  - FEELING ABNORMAL [None]
  - ABDOMINAL PAIN [None]
  - PAIN [None]
  - HYPOAESTHESIA [None]
  - PARAESTHESIA [None]
